FAERS Safety Report 5353013-X (Version None)
Quarter: 2007Q2

REPORT INFORMATION
  Report Type: 
  Country: None (occurrence: None)
  Receive Date: 20070611
  Receipt Date: 20070601
  Transmission Date: 20071010
  Serious: Yes (Hospitalization)
  Sender: FDA-Public Use
  Company Number: US-AMGEN-STX224160

PATIENT
  Sex: Female

DRUGS (9)
  1. ENBREL [Suspect]
     Indication: RHEUMATOID ARTHRITIS
     Route: 058
     Dates: start: 20040822
  2. METHOTREXATE [Concomitant]
     Route: 058
     Dates: start: 20010101
  3. FOLIC ACID [Concomitant]
  4. CAPTOPRIL [Concomitant]
  5. HYDROCODONE BITARTRATE [Concomitant]
  6. TRIAMTERENE AND HYDROCHLOROTHIAZIDE [Concomitant]
  7. LEVOXYL [Concomitant]
  8. HYDROXYCHLOROQUINE SULFATE [Concomitant]
  9. VERAPAMIL [Concomitant]

REACTIONS (8)
  - COUGH [None]
  - HALLUCINATION [None]
  - HERPES ZOSTER [None]
  - INSOMNIA [None]
  - KNEE ARTHROPLASTY [None]
  - PRURITUS [None]
  - RHINORRHOEA [None]
  - TOOTH INJURY [None]
